APPROVED DRUG PRODUCT: DIALYTE LM/ DEXTROSE 1.5% IN PLASTIC CONTAINER
Active Ingredient: CALCIUM CHLORIDE; DEXTROSE; MAGNESIUM CHLORIDE; SODIUM CHLORIDE; SODIUM LACTATE
Strength: 26MG/100ML;1.5GM/100ML;5MG/100ML;530MG/100ML;450MG/100ML
Dosage Form/Route: SOLUTION;INTRAPERITONEAL
Application: N018460 | Product #007
Applicant: B BRAUN MEDICAL INC
Approved: Jan 29, 1986 | RLD: No | RS: No | Type: DISCN